FAERS Safety Report 21188215 (Version 1)
Quarter: 2022Q3

REPORT INFORMATION
  Report Type: Report from Study
  Country: US (occurrence: US)
  Receive Date: 20220809
  Receipt Date: 20220809
  Transmission Date: 20221026
  Serious: No
  Sender: FDA-Public Use
  Company Number: US-NOVARTISTESTPH-NVSC2022US178060

PATIENT
  Sex: Female

DRUGS (3)
  1. KESIMPTA [Suspect]
     Active Substance: OFATUMUMAB
     Indication: Relapsing multiple sclerosis
     Dosage: 20 MG, QMO
     Route: 058
     Dates: start: 20220624
  2. KESIMPTA [Suspect]
     Active Substance: OFATUMUMAB
     Indication: Clinically isolated syndrome
  3. KESIMPTA [Suspect]
     Active Substance: OFATUMUMAB
     Indication: Secondary progressive multiple sclerosis

REACTIONS (7)
  - Influenza like illness [Recovering/Resolving]
  - Chills [Recovering/Resolving]
  - Pain [Recovering/Resolving]
  - Feeling hot [Recovering/Resolving]
  - Fatigue [Not Recovered/Not Resolved]
  - Maternal exposure during breast feeding [Unknown]
  - Injection site hypersensitivity [Recovering/Resolving]
